FAERS Safety Report 4518718-9 (Version None)
Quarter: 2004Q4

REPORT INFORMATION
  Report Type: 
  Country: None (occurrence: None)
  Receive Date: 20041201
  Receipt Date: 20041122
  Transmission Date: 20050328
  Serious: Yes (Hospitalization)
  Sender: FDA-Public Use
  Company Number: 2004096806

PATIENT
  Age: 83 Year
  Sex: Male
  Weight: 56.6996 kg

DRUGS (1)
  1. DETROL LA [Suspect]
     Indication: HYPERTONIC BLADDER
     Dosage: 4 MG (4 MG, QD INTERVAL:  EVERY DAY), ORAL
     Route: 048
     Dates: start: 20041001

REACTIONS (3)
  - CONSTIPATION [None]
  - FALL [None]
  - TREATMENT NONCOMPLIANCE [None]
